FAERS Safety Report 9352575 (Version 1)
Quarter: 2013Q2

REPORT INFORMATION
  Report Type: Spontaneous
  Country: US (occurrence: US)
  Receive Date: 20130618
  Receipt Date: 20130618
  Transmission Date: 20140414
  Serious: Yes (Other)
  Sender: FDA-Public Use
  Company Number: US-ROCHE-1236314

PATIENT
  Sex: Female

DRUGS (3)
  1. KLONOPIN [Suspect]
     Indication: INSOMNIA
     Route: 065
  2. LEXAPRO [Concomitant]
     Indication: INSOMNIA
     Route: 065
  3. TRAZODONE [Concomitant]
     Indication: INSOMNIA
     Route: 065

REACTIONS (4)
  - Dysstasia [Unknown]
  - Abasia [Unknown]
  - Somnolence [Unknown]
  - Memory impairment [Unknown]
